FAERS Safety Report 5128079-2 (Version None)
Quarter: 2006Q4

REPORT INFORMATION
  Report Type: 
  Country: None (occurrence: None)
  Receive Date: 20061010
  Receipt Date: 20060926
  Transmission Date: 20070319
  Serious: Yes (Other)
  Sender: FDA-Public Use
  Company Number: 148084ISR

PATIENT
  Sex: Male

DRUGS (1)
  1. COPAXONE [Suspect]
     Dosage: 20 MG (20 MG, 1 IN 1 D)
     Route: 058
     Dates: start: 19980101

REACTIONS (1)
  - GLIOBLASTOMA [None]
